FAERS Safety Report 9973012 (Version 1)
Quarter: 2014Q1

REPORT INFORMATION
  Report Type: Spontaneous
  Country: DK (occurrence: DK)
  Receive Date: 20140306
  Receipt Date: 20140306
  Transmission Date: 20141002
  Serious: Yes (Other)
  Sender: FDA-Public Use
  Company Number: DK-PFIZER INC-2014058805

PATIENT
  Age: 13 Year
  Sex: Female

DRUGS (1)
  1. SULFASALAZINE [Suspect]
     Indication: CROHN^S DISEASE
     Dosage: 1.5 G, DAILY

REACTIONS (6)
  - Cerebral infarction [Unknown]
  - Hemiparesis [Recovered/Resolved]
  - Hypersensitivity [Unknown]
  - Headache [Unknown]
  - Pruritus generalised [Unknown]
  - Pyrexia [Unknown]
